FAERS Safety Report 10534263 (Version 1)
Quarter: 2014Q4

REPORT INFORMATION
  Report Type: Spontaneous
  Country: GB (occurrence: GB)
  Receive Date: 20141022
  Receipt Date: 20141022
  Transmission Date: 20150529
  Serious: Yes (Hospitalization)
  Sender: FDA-Public Use
  Company Number: GB-WATSON-2014-22170

PATIENT
  Age: 37 Year
  Sex: Male
  Weight: 83 kg

DRUGS (1)
  1. LAMOTRIGINE (UNKNOWN) [Suspect]
     Active Substance: LAMOTRIGINE
     Indication: EPILEPSY
     Dosage: 25 MG, QOD;ALTERNATE DAYS FOR TWO WEEKS (ONCE 2 DAY)
     Route: 065
     Dates: start: 20131120, end: 20131207

REACTIONS (3)
  - Rash [Recovered/Resolved]
  - Neutropenic sepsis [Recovered/Resolved]
  - Mouth ulceration [Recovered/Resolved]
